FAERS Safety Report 4920209-8 (Version None)
Quarter: 2006Q1

REPORT INFORMATION
  Report Type: 
  Country: None (occurrence: None)
  Receive Date: 20060223
  Receipt Date: 20060216
  Transmission Date: 20060701
  Serious: Yes (Disabling)
  Sender: FDA-Public Use
  Company Number: 2006UW02725

PATIENT
  Sex: Male

DRUGS (3)
  1. SEROQUEL [Suspect]
     Route: 048
     Dates: start: 20020101, end: 20040601
  2. RISPERDAL [Suspect]
     Dates: start: 20020101, end: 20040601
  3. ZYPREXA [Suspect]
     Dates: start: 20020101, end: 20040601

REACTIONS (2)
  - ILL-DEFINED DISORDER [None]
  - INJURY [None]
